FAERS Safety Report 8439887-4 (Version None)
Quarter: 2012Q2

REPORT INFORMATION
  Report Type: 
  Country: None (occurrence: None)
  Receive Date: 20120615
  Receipt Date: 20120613
  Transmission Date: 20120825
  Serious: Yes (Other)
  Sender: FDA-Public Use
  Company Number: PHHY2012AR051095

PATIENT
  Sex: Female

DRUGS (1)
  1. GILENYA [Suspect]
     Dosage: UNK

REACTIONS (3)
  - LYMPHOCYTE COUNT DECREASED [None]
  - BUNDLE BRANCH BLOCK BILATERAL [None]
  - WHITE BLOOD CELL COUNT DECREASED [None]
